FAERS Safety Report 14745462 (Version 1)
Quarter: 2018Q2

REPORT INFORMATION
  Report Type: Report from Study
  Country: None (occurrence: CA)
  Receive Date: 20180411
  Receipt Date: 20180411
  Transmission Date: 20180711
  Serious: Yes (Other)
  Sender: FDA-Public Use
  Company Number: CA-ABBVIE-18K-028-2318138-00

PATIENT
  Age: 38 Year
  Sex: Male

DRUGS (1)
  1. HUMIRA [Suspect]
     Active Substance: ADALIMUMAB
     Indication: ANKYLOSING SPONDYLITIS
     Dosage: MISSED DOSE DUE ON 26 MAR 2018 DUE TO THE SURGERY
     Route: 058
     Dates: start: 20150923, end: 201803

REACTIONS (6)
  - Post procedural haemorrhage [Not Recovered/Not Resolved]
  - Nasal congestion [Not Recovered/Not Resolved]
  - Snoring [Unknown]
  - Throat irritation [Not Recovered/Not Resolved]
  - Procedural pain [Recovering/Resolving]
  - Oropharyngeal pain [Not Recovered/Not Resolved]

NARRATIVE: CASE EVENT DATE: 201804
